FAERS Safety Report 12264805 (Version 1)
Quarter: 2016Q2

REPORT INFORMATION
  Report Type: Spontaneous
  Country: US (occurrence: US)
  Receive Date: 20160413
  Receipt Date: 20160413
  Transmission Date: 20160815
  Serious: No
  Sender: FDA-Public Use
  Company Number: US-JNJFOC-20160225380

PATIENT
  Age: 83 Year
  Sex: Female
  Weight: 52.16 kg

DRUGS (11)
  1. LISINOPRIL. [Concomitant]
     Active Substance: LISINOPRIL
     Indication: HYPERTENSION
     Dosage: YEARS
     Route: 065
  2. FISH OIL [Concomitant]
     Active Substance: FISH OIL
     Indication: UNEVALUABLE EVENT
     Dosage: 1YEAR
     Route: 065
  3. ATORVASTATIN [Concomitant]
     Active Substance: ATORVASTATIN
     Indication: BLOOD CHOLESTEROL INCREASED
     Dosage: YEARS
     Route: 065
  4. TYLENOL EXTRA STRENGTH [Suspect]
     Active Substance: ACETAMINOPHEN
     Indication: OCULAR DISCOMFORT
     Dosage: 1 CAPLET ONE TIME
     Route: 048
     Dates: start: 20160223, end: 20160223
  5. LEVOTHYROXINE. [Concomitant]
     Active Substance: LEVOTHYROXINE
     Indication: HYPOTHYROIDISM
     Dosage: YEARS
     Route: 065
  6. LATANOPROST. [Concomitant]
     Active Substance: LATANOPROST
     Indication: OCULAR DISCOMFORT
     Dosage: 005MG DAILLY, ONE YEAR
     Route: 065
  7. TYLENOL EXTRA STRENGTH [Suspect]
     Active Substance: ACETAMINOPHEN
     Indication: EYE PAIN
     Dosage: 1 CAPLET ONE TIME
     Route: 048
     Dates: start: 20160223, end: 20160223
  8. ASPIRIN. [Concomitant]
     Active Substance: ASPIRIN
     Indication: CARDIAC DISORDER
     Dosage: 81MG DAILY,  YEARS
     Route: 065
  9. PANTOPRAZOLE [Concomitant]
     Active Substance: PANTOPRAZOLE SODIUM
     Indication: GASTROOESOPHAGEAL REFLUX DISEASE
     Dosage: YEARS
     Route: 065
  10. LINUM USITATISSIMUM SEED OIL [Concomitant]
     Indication: UNEVALUABLE EVENT
     Dosage: 1YEAR
     Route: 065
  11. XANAX [Concomitant]
     Active Substance: ALPRAZOLAM
     Indication: ANXIETY
     Dosage: YEARS
     Route: 065

REACTIONS (4)
  - Product quality issue [Unknown]
  - Product use issue [Unknown]
  - Abnormal dreams [Recovered/Resolved]
  - Off label use [Unknown]

NARRATIVE: CASE EVENT DATE: 20160224
